FAERS Safety Report 4353286-6 (Version None)
Quarter: 2004Q2

REPORT INFORMATION
  Report Type: 
  Country: None (occurrence: None)
  Receive Date: 20040504
  Receipt Date: 20040504
  Transmission Date: 20050107
  Serious: Yes (Other)
  Sender: FDA-Public Use
  Company Number: None

PATIENT
  Age: 32 Year
  Sex: Female
  Weight: 56.6996 kg

DRUGS (2)
  1. ADVAIR DISKUS 250/50 [Suspect]
     Indication: ASTHMA
     Dosage: 1 INHAL 2X DAY RESPIRATORY
     Route: 055
     Dates: start: 20040430, end: 20040502
  2. FLORINEF [Concomitant]

REACTIONS (4)
  - FEELING ABNORMAL [None]
  - MOVEMENT DISORDER [None]
  - MUSCLE CRAMP [None]
  - SPEECH DISORDER [None]
